FAERS Safety Report 6795519-2 (Version None)
Quarter: 2010Q2

REPORT INFORMATION
  Report Type: 
  Country: None (occurrence: None)
  Receive Date: 20100520
  Receipt Date: 20090625
  Transmission Date: 20101027
  Serious: Yes (Other)
  Sender: FDA-Public Use
  Company Number: 2009232722

PATIENT
  Age: 62 Year
  Sex: Female
  Weight: 104 kg

DRUGS (10)
  1. PROVERA [Suspect]
     Indication: HORMONE REPLACEMENT THERAPY
     Dosage: ORAL
     Route: 048
     Dates: start: 19990101, end: 20040101
  2. PREMARIN [Suspect]
     Indication: HORMONE REPLACEMENT THERAPY
     Dates: start: 19950223, end: 20040101
  3. PREMPRO [Suspect]
     Indication: HORMONE REPLACEMENT THERAPY
     Dates: start: 19970813, end: 19991021
  4. FEMHRT [Suspect]
     Indication: HORMONE REPLACEMENT THERAPY
  5. GLUCOVANCE [Concomitant]
  6. NORVASC [Concomitant]
  7. ENALAPRIL MALEATE [Concomitant]
  8. LEVOTHYROXINE SODIUM [Concomitant]
  9. CRESTOR [Concomitant]
  10. LIPITOR [Concomitant]

REACTIONS (1)
  - BREAST CANCER [None]
